FAERS Safety Report 6386169-0 (Version None)
Quarter: 2009Q4

REPORT INFORMATION
  Report Type: 
  Country: None (occurrence: None)
  Receive Date: 20091002
  Receipt Date: 20081126
  Transmission Date: 20100525
  Serious: Yes (Other)
  Sender: FDA-Public Use
  Company Number: US-ASTRAZENECA-2008UW26499

PATIENT
  Age: 54 Year
  Sex: Female
  Weight: 117.9 kg

DRUGS (13)
  1. ARIMIDEX [Suspect]
     Indication: BREAST CANCER
     Route: 048
     Dates: start: 20040101
  2. LISINOPRIL [Concomitant]
  3. ALDACTONE [Concomitant]
  4. GLIPIZIDE [Concomitant]
  5. LANTUS [Concomitant]
  6. HYDROCHLOROTHIAZIDE [Concomitant]
  7. ALLEGRA [Concomitant]
  8. ZETIA [Concomitant]
  9. COREG [Concomitant]
  10. NABUMETONE [Concomitant]
  11. ALBUTEROL [Concomitant]
  12. NITROGLYCERIN [Concomitant]
  13. ACTOS [Concomitant]

REACTIONS (1)
  - FRACTURE [None]
